FAERS Safety Report 9435915 (Version 1)
Quarter: 2013Q3

REPORT INFORMATION
  Report Type: Report from Study
  Country: DK (occurrence: DK)
  Receive Date: 20130801
  Receipt Date: 20130801
  Transmission Date: 20140515
  Serious: Yes (Hospitalization)
  Sender: FDA-Public Use
  Company Number: DK-ROCHE-1256089

PATIENT
  Age: 49 Year
  Sex: Male

DRUGS (6)
  1. BEVACIZUMAB [Suspect]
     Indication: METASTATIC RENAL CELL CARCINOMA
     Dosage: COURSE 4
     Route: 042
     Dates: start: 20130422, end: 20130729
  2. ALDESLEUKIN [Suspect]
     Indication: METASTATIC RENAL CELL CARCINOMA
     Dosage: COURSE 4
     Route: 058
     Dates: start: 20130422, end: 20130726
  3. INTERFERON ALFA-2B [Suspect]
     Indication: METASTATIC RENAL CELL CARCINOMA
     Dosage: COURSE 4
     Route: 058
     Dates: start: 20130415, end: 20130730
  4. PANTOPRAZOLE [Concomitant]
     Route: 048
     Dates: start: 20130219
  5. DESMOPRESSIN [Concomitant]
     Route: 065
     Dates: start: 20130415
  6. TRAMADOL [Concomitant]
     Route: 065
     Dates: start: 20130219

REACTIONS (1)
  - Confusional state [Not Recovered/Not Resolved]
